FAERS Safety Report 9441614 (Version 2)
Quarter: 2013Q3

REPORT INFORMATION
  Report Type: Spontaneous
  Country: PE (occurrence: PE)
  Receive Date: 20130806
  Receipt Date: 20130806
  Transmission Date: 20140515
  Serious: Yes (Life-Threatening, Hospitalization)
  Sender: FDA-Public Use
  Company Number: PE-ROCHE-1256388

PATIENT
  Age: 20 Year
  Sex: Female
  Weight: 95 kg

DRUGS (4)
  1. CELLCEPT [Suspect]
     Indication: LUPUS NEPHRITIS
     Route: 048
     Dates: start: 201001
  2. METICORTEN [Concomitant]
     Route: 065
     Dates: start: 201001
  3. PLAQUENIL [Concomitant]
     Route: 065
     Dates: start: 201001
  4. WARFARIN SODIUM [Concomitant]
     Route: 065
     Dates: start: 201002

REACTIONS (5)
  - Cerebrovascular accident [Recovered/Resolved]
  - International normalised ratio increased [Unknown]
  - Anaemia [Recovered/Resolved]
  - Menorrhagia [Unknown]
  - Coma [Recovered/Resolved]
